FAERS Safety Report 9995160 (Version 1)
Quarter: 2014Q1

REPORT INFORMATION
  Report Type: Spontaneous
  Country: JP (occurrence: None)
  Receive Date: 20140307
  Receipt Date: 20140307
  Transmission Date: 20141002
  Serious: Yes (Other)
  Sender: FDA-Public Use
  Company Number: SYM-2014-18052

PATIENT
  Age: 75 Year
  Sex: Male

DRUGS (5)
  1. FLUOROURACIL [Suspect]
     Indication: ADENOCARCINOMA
  2. CISPLATIN (CISPLATIN) (CISPLATIN) [Suspect]
     Indication: ADENOCARCINOMA
  3. CETUXIMAB (CETUXIMAB) (CETUXIMAB) [Suspect]
     Indication: ADENOCARCINOMA
  4. DOCETAXEL (DOCETAXEL) (DOCETAXEL) [Suspect]
     Indication: ADENOCARCINOMA
     Dates: start: 201204
  5. CARBOPLATIN [Suspect]
     Indication: ADENOCARCINOMA
     Dates: start: 201204

REACTIONS (6)
  - Electrolyte imbalance [None]
  - Neutrophil count decreased [None]
  - Decreased appetite [None]
  - Dermatitis acneiform [None]
  - Hypoaesthesia [None]
  - Off label use [None]
